FAERS Safety Report 13159478 (Version 1)
Quarter: 2017Q1

REPORT INFORMATION
  Report Type: Spontaneous
  Country: FR (occurrence: FR)
  Receive Date: 20170127
  Receipt Date: 20170127
  Transmission Date: 20170428
  Serious: Yes (Other)
  Sender: FDA-Public Use
  Company Number: FR-ACORDA-ACO_133026_2017

PATIENT
  Age: 59 Year
  Sex: Female

DRUGS (5)
  1. QUTENZA [Suspect]
     Active Substance: CAPSAICIN
     Dosage: UNK UNK, EVERY 3 MONTHS
  2. QUTENZA [Suspect]
     Active Substance: CAPSAICIN
     Dosage: UNK UNK, EVERY 3 MONTHS
     Dates: start: 20161209, end: 20161209
  3. QUTENZA [Suspect]
     Active Substance: CAPSAICIN
     Indication: NEURALGIA
     Dosage: UNK UNK, EVERY 3 MONTHS
     Route: 061
  4. QUTENZA [Suspect]
     Active Substance: CAPSAICIN
     Dosage: UNK UNK, EVERY 3 MONTHS
  5. QUTENZA [Suspect]
     Active Substance: CAPSAICIN
     Dosage: UNK UNK, EVERY 3 MONTHS

REACTIONS (4)
  - Burns second degree [Recovered/Resolved]
  - Application site erythema [Recovered/Resolved]
  - Drug effect decreased [Unknown]
  - Application site pain [Recovered/Resolved]

NARRATIVE: CASE EVENT DATE: 201612
